FAERS Safety Report 6220541-4 (Version None)
Quarter: 2009Q2

REPORT INFORMATION
  Report Type: 
  Country: None (occurrence: None)
  Receive Date: 20090610
  Receipt Date: 20090601
  Transmission Date: 20091009
  Serious: Yes (Hospitalization, Other)
  Sender: FDA-Public Use
  Company Number: US-JNJFOC-20090600969

PATIENT
  Sex: Male
  Weight: 28 kg

DRUGS (5)
  1. INFLIXIMAB [Suspect]
     Route: 042
  2. INFLIXIMAB [Suspect]
     Indication: CROHN'S DISEASE
     Route: 042
  3. CLONAZEPAM [Concomitant]
     Indication: DRUG USE FOR UNKNOWN INDICATION
  4. PROZAC [Concomitant]
     Indication: DRUG USE FOR UNKNOWN INDICATION
  5. ADDERALL 10 [Concomitant]
     Indication: DRUG USE FOR UNKNOWN INDICATION

REACTIONS (2)
  - ANXIETY [None]
  - PSYCHOTIC DISORDER [None]
